FAERS Safety Report 9788921 (Version 1)
Quarter: 2013Q4

REPORT INFORMATION
  Report Type: Spontaneous
  Country: AU (occurrence: AU)
  Receive Date: 20131230
  Receipt Date: 20131230
  Transmission Date: 20140711
  Serious: Yes (Hospitalization, Other)
  Sender: FDA-Public Use
  Company Number: AU-GLAXOSMITHKLINE-B0956044A

PATIENT
  Age: 72 Year
  Sex: Male

DRUGS (6)
  1. DUODART [Suspect]
     Indication: BENIGN PROSTATIC HYPERPLASIA
     Route: 065
     Dates: start: 201212
  2. CANDESARTAN [Concomitant]
  3. BISOPROLOL [Concomitant]
  4. IRBESARTAN [Concomitant]
  5. FRUSEMIDE [Concomitant]
  6. GLYCERYL TRINITRATE SPRAY [Concomitant]

REACTIONS (2)
  - Cardiomyopathy [Unknown]
  - Dyspnoea [Unknown]
